FAERS Safety Report 8043853-0 (Version None)
Quarter: 2012Q1

REPORT INFORMATION
  Report Type: 
  Country: None (occurrence: None)
  Receive Date: 20120113
  Receipt Date: 20120105
  Transmission Date: 20120608
  Serious: No
  Sender: FDA-Public Use
  Company Number: US-BIOGENIDEC-2012BI000782

PATIENT
  Age: 59 Year
  Sex: Female

DRUGS (2)
  1. TYSABRI [Suspect]
     Indication: MULTIPLE SCLEROSIS
     Route: 042
     Dates: start: 20110930
  2. TYSABRI [Suspect]
     Route: 042
     Dates: start: 20071108, end: 20091208

REACTIONS (4)
  - OPTIC NEURITIS [None]
  - VEIN DISORDER [None]
  - COGNITIVE DISORDER [None]
  - ABDOMINAL DISTENSION [None]
